FAERS Safety Report 14425845 (Version 3)
Quarter: 2019Q4

REPORT INFORMATION
  Report Type: Spontaneous
  Country: FR (occurrence: FR)
  Receive Date: 20180123
  Receipt Date: 20191221
  Transmission Date: 20200122
  Serious: Yes (Hospitalization)
  Sender: FDA-Public Use
  Company Number: FR-TAKEDA-2018TUS001414

PATIENT
  Age: 44 Year
  Sex: Male
  Weight: 96 kg

DRUGS (8)
  1. PYOSTACINE [Suspect]
     Active Substance: PRISTINAMYCIN
     Indication: INFLUENZA LIKE ILLNESS
     Dosage: 500 MILLIGRAM
     Route: 048
     Dates: start: 20171025, end: 20171030
  2. FOSAVANCE [Concomitant]
     Active Substance: ALENDRONATE SODIUM\CHOLECALCIFEROL
     Dosage: UNK
     Route: 048
  3. ENTYVIO [Suspect]
     Active Substance: VEDOLIZUMAB
     Indication: COLITIS
     Dosage: 300 MILLIGRAM
     Route: 041
     Dates: start: 20170302, end: 20170907
  4. PENTASA [Concomitant]
     Active Substance: MESALAMINE
     Dosage: UNK
     Route: 054
  5. METOJECT [Suspect]
     Active Substance: METHOTREXATE SODIUM
     Indication: COLITIS
     Dosage: 25 MILLIGRAM, 1/WEEK
     Route: 058
     Dates: start: 20161201
  6. PREDNISOLONE. [Concomitant]
     Active Substance: PREDNISOLONE
     Dosage: UNK
     Route: 048
  7. DIFFU K [Concomitant]
     Active Substance: POTASSIUM CHLORIDE
     Dosage: UNK
     Route: 048
  8. OROCAL                             /07357001/ [Concomitant]
     Active Substance: CALCIUM CARBONATE
     Dosage: 500 MILLIGRAM
     Route: 048

REACTIONS (3)
  - Proteinuria [Recovered/Resolved]
  - Hypersensitivity vasculitis [Recovering/Resolving]
  - Clostridium difficile colitis [Recovered/Resolved]

NARRATIVE: CASE EVENT DATE: 20171030
